FAERS Safety Report 11118332 (Version 1)
Quarter: 2015Q2

REPORT INFORMATION
  Report Type: Spontaneous
  Country: US (occurrence: None)
  Receive Date: 20150515
  Receipt Date: 20150515
  Transmission Date: 20150821
  Serious: Yes (Other)
  Sender: FDA-Public Use
  Company Number: None

PATIENT
  Sex: Female

DRUGS (1)
  1. VALSARTAN. [Suspect]
     Active Substance: VALSARTAN
     Route: 048
     Dates: start: 20150414, end: 20150504

REACTIONS (3)
  - Product quality issue [None]
  - Oedema peripheral [None]
  - Sleep terror [None]
